FAERS Safety Report 6373933-7 (Version None)
Quarter: 2009Q3

REPORT INFORMATION
  Report Type: 
  Country: None (occurrence: None)
  Receive Date: 20090924
  Receipt Date: 20090526
  Transmission Date: 20100115
  Serious: No
  Sender: FDA-Public Use
  Company Number: US-ASTRAZENECA-2009UW13384

PATIENT
  Sex: Male

DRUGS (6)
  1. SEROQUEL XR [Suspect]
     Route: 048
     Dates: end: 20090201
  2. SEROQUEL XR [Suspect]
     Route: 048
     Dates: start: 20090201, end: 20090521
  3. SEROQUEL XR [Suspect]
     Route: 048
     Dates: start: 20090522
  4. CHANTIX [Concomitant]
     Indication: SMOKING CESSATION THERAPY
  5. CLARITIN [Concomitant]
  6. MOTRIN [Concomitant]

REACTIONS (1)
  - DRUG SCREEN POSITIVE [None]
